FAERS Safety Report 25101100 (Version 1)
Quarter: 2025Q1

REPORT INFORMATION
  Report Type: Spontaneous
  Country: CN (occurrence: CN)
  Receive Date: 20250320
  Receipt Date: 20250320
  Transmission Date: 20250409
  Serious: Yes (Hospitalization, Other)
  Sender: DAIICHI
  Company Number: CN-DSJP-DS-2025-130830-CN

PATIENT
  Age: 45 Year
  Sex: Female
  Weight: 53 kg

DRUGS (4)
  1. ENHERTU [Suspect]
     Active Substance: FAM-TRASTUZUMAB DERUXTECAN-NXKI
     Indication: Chemotherapy
     Dosage: UNK UNK, ONCE EVERY 3 WK
     Route: 041
  2. ENHERTU [Suspect]
     Active Substance: FAM-TRASTUZUMAB DERUXTECAN-NXKI
     Dosage: 286.000 MG, ONCE EVERY 3 WK (ONCE IN 21 DAYS)
     Route: 041
     Dates: start: 20250228, end: 20250228
  3. STERILE WATER [Concomitant]
     Active Substance: WATER
     Indication: Medication dilution
     Dosage: 500.000 ML, ONCE EVERY 3 WK (ONCE IN 21 DAYS)
     Route: 041
     Dates: start: 20250228, end: 20250228
  4. DEXTROSE [Concomitant]
     Active Substance: DEXTROSE MONOHYDRATE
     Indication: Medication dilution
     Dosage: 100 ML, ONCE EVERY 3 WK  (ONCE IN 21 DAYS)
     Route: 041
     Dates: start: 20250228, end: 20250228

REACTIONS (4)
  - Myelosuppression [Recovering/Resolving]
  - Food aversion [Recovering/Resolving]
  - Epistaxis [Recovered/Resolved]
  - Nausea [Recovering/Resolving]

NARRATIVE: CASE EVENT DATE: 20250304
